FAERS Safety Report 13045132 (Version 3)
Quarter: 2017Q1

REPORT INFORMATION
  Report Type: Report from Study
  Country: DE (occurrence: DE)
  Receive Date: 20161220
  Receipt Date: 20170115
  Transmission Date: 20170428
  Serious: Yes (Other)
  Sender: FDA-Public Use
  Company Number: DE-AMGEN-DEUNI2016177108

PATIENT
  Age: 78 Year
  Sex: Female
  Weight: 66 kg

DRUGS (3)
  1. DENOSUMAB [Suspect]
     Active Substance: DENOSUMAB
     Indication: METASTASES TO BONE
     Dosage: 120 MG, QMO
     Route: 058
     Dates: start: 20150608
  2. KADCYLA [Concomitant]
     Active Substance: ADO-TRASTUZUMAB EMTANSINE
     Dosage: UNK
     Dates: start: 20141014, end: 20151117
  3. TRASTUZUMAB [Concomitant]
     Active Substance: TRASTUZUMAB
     Dosage: 400 MG, Q3WK
     Route: 042
     Dates: start: 20151209

REACTIONS (1)
  - Osteonecrosis of jaw [Not Recovered/Not Resolved]

NARRATIVE: CASE EVENT DATE: 20160830
